FAERS Safety Report 9051372 (Version 1)
Quarter: 2013Q1

REPORT INFORMATION
  Report Type: Spontaneous
  Country: JP (occurrence: JP)
  Receive Date: 20130206
  Receipt Date: 20130206
  Transmission Date: 20140127
  Serious: Yes (Other)
  Sender: FDA-Public Use
  Company Number: JP-PFIZER INC-2013047113

PATIENT
  Age: 9 Decade
  Sex: Female

DRUGS (2)
  1. CELECOX [Suspect]
     Dosage: UNK
     Route: 048
  2. FAMOTIDINE [Concomitant]
     Dosage: UNK

REACTIONS (1)
  - Chest X-ray abnormal [Unknown]
